FAERS Safety Report 7630823-7 (Version None)
Quarter: 2011Q3

REPORT INFORMATION
  Report Type: 
  Country: None (occurrence: None)
  Receive Date: 20110723
  Receipt Date: 20110713
  Transmission Date: 20111222
  Serious: Yes (Other)
  Sender: FDA-Public Use
  Company Number: JP-ABBOTT-11P-087-0839129-00

PATIENT
  Sex: Female
  Weight: 45 kg

DRUGS (6)
  1. HUMIRA [Suspect]
     Indication: COLITIS ULCERATIVE
     Route: 058
     Dates: start: 20100423, end: 20110620
  2. HUMIRA [Suspect]
     Dosage: BLINDED
     Route: 058
  3. HUMIRA [Suspect]
     Dosage: BLINDED
     Route: 058
     Dates: start: 20100423, end: 20100423
  4. HUMIRA [Suspect]
     Dosage: BLINDED
     Route: 058
     Dates: start: 20100520, end: 20110407
  5. HUMIRA [Suspect]
     Dosage: OPEN LABEL
     Route: 058
     Dates: start: 20110420, end: 20110620
  6. PENTASA [Concomitant]
     Indication: PRODUCT USED FOR UNKNOWN INDICATION
     Route: 048

REACTIONS (1)
  - ABDOMINAL MASS [None]
